FAERS Safety Report 9522342 (Version 1)
Quarter: 2013Q1

REPORT INFORMATION
  Report Type: Spontaneous
  Country: US (occurrence: None)
  Receive Date: 20130305
  Receipt Date: 20130305
  Transmission Date: 20140127
  Serious: Yes (Other)
  Sender: FDA-Public Use
  Company Number: 163-21880-12063751

PATIENT
  Age: 57 Year
  Sex: Female
  Weight: 53.3 kg

DRUGS (1)
  1. REVLIMID [Suspect]
     Indication: MYELODYSPLASTIC SYNDROME
     Dosage: 5 MG, 21 IN 28 D, PO
     Route: 048
     Dates: start: 20111117

REACTIONS (6)
  - Pharyngeal oedema [None]
  - Throat irritation [None]
  - Vomiting [None]
  - Sinusitis [None]
  - Dyspnoea [None]
  - Cough [None]
